FAERS Safety Report 25269305 (Version 1)
Quarter: 2025Q2

REPORT INFORMATION
  Report Type: Spontaneous
  Country: US (occurrence: None)
  Receive Date: 20250505
  Receipt Date: 20250505
  Transmission Date: 20250716
  Serious: No
  Sender: FDA-CTU
  Company Number: None

PATIENT
  Sex: Female

DRUGS (1)
  1. REVLIMID [Suspect]
     Active Substance: LENALIDOMIDE

REACTIONS (6)
  - Rash [None]
  - Skin exfoliation [None]
  - Skin exfoliation [None]
  - Oedema [None]
  - Weight increased [None]
  - Dry skin [None]
